FAERS Safety Report 21770060 (Version 4)
Quarter: 2023Q4

REPORT INFORMATION
  Report Type: Spontaneous
  Country: US (occurrence: US)
  Receive Date: 20221223
  Receipt Date: 20231205
  Transmission Date: 20240110
  Serious: No
  Sender: FDA-Public Use
  Company Number: US-SA-SAC20221221000158

PATIENT
  Age: 14 Year
  Sex: Male

DRUGS (1)
  1. DUPIXENT [Suspect]
     Active Substance: DUPILUMAB
     Indication: Dermatitis atopic
     Dosage: 300 MG, QOW
     Route: 058
     Dates: start: 20221220

REACTIONS (7)
  - Sleep disorder [Unknown]
  - Erythema [Unknown]
  - Oropharyngeal pain [Unknown]
  - Rash [Unknown]
  - Discomfort [Unknown]
  - Dermatitis atopic [Unknown]
  - Drug ineffective [Unknown]
